FAERS Safety Report 15756495 (Version 1)
Quarter: 2018Q4

REPORT INFORMATION
  Report Type: Spontaneous
  Country: US (occurrence: US)
  Receive Date: 20181222
  Receipt Date: 20181222
  Transmission Date: 20190205
  Serious: Yes (Disabling, Other)
  Sender: FDA-Public Use
  Company Number: None

PATIENT
  Age: 46 Year
  Sex: Female
  Weight: 109.35 kg

DRUGS (4)
  1. LAMICTAL [Concomitant]
     Active Substance: LAMOTRIGINE
  2. LISINOPRIL. [Concomitant]
     Active Substance: LISINOPRIL
  3. TERBINAFINE HCL 250 MG TABLET [Suspect]
     Active Substance: TERBINAFINE HYDROCHLORIDE
     Indication: ONYCHOMYCOSIS
     Dosage: ?          QUANTITY:42 TABLET(S);?
     Route: 048
     Dates: start: 20181203, end: 20181217
  4. TRAZODONE [Concomitant]
     Active Substance: TRAZODONE HYDROCHLORIDE

REACTIONS (10)
  - Nausea [None]
  - Oliguria [None]
  - Fear [None]
  - Somnolence [None]
  - Anxiety [None]
  - Nightmare [None]
  - Depressed mood [None]
  - Abnormal behaviour [None]
  - Dizziness [None]
  - Constipation [None]

NARRATIVE: CASE EVENT DATE: 20181216
